FAERS Safety Report 17461547 (Version 1)
Quarter: 2020Q1

REPORT INFORMATION
  Report Type: Report from Study
  Country: DE (occurrence: DE)
  Receive Date: 20200226
  Receipt Date: 20200226
  Transmission Date: 20200409
  Serious: Yes (Hospitalization, Other)
  Sender: FDA-Public Use
  Company Number: DE-GILEAD-2020-0452354

PATIENT
  Age: 52 Year
  Sex: Male
  Weight: 99 kg

DRUGS (12)
  1. HYDROCORTISON [HYDROCORTISONE] [Concomitant]
  2. VITAMIN D3 CALCIUM [Concomitant]
     Active Substance: CALCIUM\CHOLECALCIFEROL
  3. VITAMIN B12 [Concomitant]
     Active Substance: CYANOCOBALAMIN
  4. HUMIRA [Concomitant]
     Active Substance: ADALIMUMAB
  5. PANTOPRAZOL [PANTOPRAZOLE] [Concomitant]
     Active Substance: PANTOPRAZOLE
  6. METHOTREXATE. [Concomitant]
     Active Substance: METHOTREXATE
  7. LEDIPASVIR/SOFOSBUVIR [Suspect]
     Active Substance: LEDIPASVIR\SOFOSBUVIR
     Indication: CHRONIC HEPATITIS C
     Dosage: 1 DOSAGE FORM, QD
     Route: 048
     Dates: start: 20150311, end: 20150602
  8. PENTASA [Concomitant]
     Active Substance: MESALAMINE
  9. PREDNISOLONE. [Concomitant]
     Active Substance: PREDNISOLONE
  10. DECORTIN [Concomitant]
     Active Substance: PREDNISONE
  11. SALBU [SALBUTAMOL] [Concomitant]
  12. FOLIC ACID. [Concomitant]
     Active Substance: FOLIC ACID

REACTIONS (1)
  - Ureterolithiasis [Unknown]

NARRATIVE: CASE EVENT DATE: 20190915
